FAERS Safety Report 15220044 (Version 1)
Quarter: 2018Q3

REPORT INFORMATION
  Report Type: Spontaneous
  Country: US (occurrence: US)
  Receive Date: 20180704
  Receipt Date: 20180704
  Transmission Date: 20181010
  Serious: Yes (Hospitalization)
  Sender: FDA-Public Use
  Company Number: None

PATIENT
  Sex: Female

DRUGS (12)
  1. ARMODAFINIL 250MG [Concomitant]
     Active Substance: ARMODAFINIL
  2. METHOTREXATE 50MG/2ML [Concomitant]
     Active Substance: METHOTREXATE
  3. HUMIRA [Suspect]
     Active Substance: ADALIMUMAB
     Indication: ARTHRITIS
     Dosage: ?          OTHER FREQUENCY:EVERY 7 DAYS;?
     Route: 058
     Dates: start: 20150715
  4. BISOPROLOL 5MG [Concomitant]
  5. METHOCARBAMOL 500MG [Concomitant]
  6. CLONAZEPAM 0.5MG [Concomitant]
     Active Substance: CLONAZEPAM
  7. TRIAMTERENE/HCTZ 37.5/25 [Concomitant]
     Active Substance: HYDROCHLOROTHIAZIDE\TRIAMTERENE
  8. PREDNISONE 5MG [Concomitant]
     Active Substance: PREDNISONE
  9. FOLIC ACID 1 MG [Concomitant]
  10. LEUCOVORIN 5MG [Concomitant]
     Active Substance: LEUCOVORIN
  11. PROAIR HFA [Concomitant]
     Active Substance: ALBUTEROL SULFATE
  12. FLUOXETINE [Concomitant]
     Active Substance: FLUOXETINE HYDROCHLORIDE

REACTIONS (4)
  - Chills [None]
  - Pyrexia [None]
  - Blood pressure increased [None]
  - Oxygen saturation decreased [None]
